FAERS Safety Report 10314976 (Version 3)
Quarter: 2014Q4

REPORT INFORMATION
  Report Type: Spontaneous
  Country: JP (occurrence: JP)
  Receive Date: 20140718
  Receipt Date: 20141212
  Transmission Date: 20150528
  Serious: Yes (Hospitalization)
  Sender: FDA-Public Use
  Company Number: JP-ASTRAZENECA-2014SE52271

PATIENT
  Age: 39 Year
  Sex: Female

DRUGS (7)
  1. MIRACLID [Concomitant]
     Active Substance: ULINASTATIN
     Indication: PANCREATITIS
  2. SOL-MELCORT [Concomitant]
     Active Substance: METHYLPREDNISOLONE SODIUM SUCCINATE
     Indication: HYPERSENSITIVITY
     Dates: start: 20130308
  3. MEROPEN [Suspect]
     Active Substance: MEROPENEM
     Indication: PANCREATITIS
     Route: 042
     Dates: start: 20130304, end: 20130311
  4. PREDNISOLONE. [Concomitant]
     Active Substance: PREDNISOLONE
     Indication: HYPERSENSITIVITY
     Dates: start: 20140311, end: 20140330
  5. GABEXATE MESILATE [Concomitant]
     Active Substance: GABEXATE MESYLATE
     Indication: PANCREATITIS
     Dates: start: 20130225, end: 20130301
  6. NAOTAMIN [Concomitant]
     Active Substance: NAFAMOSTAT
     Indication: PANCREATITIS
  7. CEFLONIC [Concomitant]
     Active Substance: CEFOPERAZONE SODIUM\SULBACTAM SODIUM
     Indication: PANCREATITIS
     Dates: start: 20130225, end: 20130304

REACTIONS (3)
  - Tubulointerstitial nephritis [Recovered/Resolved]
  - Acute kidney injury [Unknown]
  - Toxic epidermal necrolysis [Not Recovered/Not Resolved]

NARRATIVE: CASE EVENT DATE: 20130308
